FAERS Safety Report 4370069-1 (Version None)
Quarter: 2004Q2

REPORT INFORMATION
  Report Type: 
  Country: None (occurrence: None)
  Receive Date: 20040525
  Receipt Date: 20040513
  Transmission Date: 20050107
  Serious: Yes (Hospitalization, Other)
  Sender: FDA-Public Use
  Company Number: 2003119509

PATIENT
  Age: 56 Year
  Sex: Male

DRUGS (6)
  1. LIPITOR [Suspect]
     Indication: HYPERLIPIDAEMIA
     Dosage: 10 MG (DAILY), ORAL
     Route: 048
     Dates: start: 20020804, end: 20030711
  2. VALSARTAN (VALSARTAN) [Suspect]
     Indication: HYPERTENSION
     Dosage: 80 MG (DAILY), ORAL
     Route: 048
     Dates: start: 20030218, end: 20030711
  3. ACETYLSALICYLIC ACID SRT [Concomitant]
  4. CILAZAPRIL(CILAZAPRIL) [Concomitant]
  5. AMLODIPINE BESYLATE [Concomitant]
  6. METOPROLOL TARTRATE [Concomitant]

REACTIONS (4)
  - BLOOD PRESSURE DECREASED [None]
  - MALAISE [None]
  - RENAL FAILURE ACUTE [None]
  - RHABDOMYOLYSIS [None]
